FAERS Safety Report 18533416 (Version 3)
Quarter: 2020Q4

REPORT INFORMATION
  Report Type: Report from Study
  Country: US (occurrence: US)
  Receive Date: 20201123
  Receipt Date: 20201209
  Transmission Date: 20210114
  Serious: No
  Sender: FDA-Public Use
  Company Number: US-BRISTOL-MYERS SQUIBB COMPANY-BMS-2020-098762

PATIENT
  Age: 47 Year
  Sex: Male

DRUGS (2)
  1. NIVOLUMAB [Suspect]
     Active Substance: NIVOLUMAB
     Indication: COLORECTAL CANCER
     Dosage: 480 MILLIGRAM, TOTAL DOSES - 4
     Route: 042
     Dates: start: 20200106, end: 20200330
  2. COPANLISIB. [Suspect]
     Active Substance: COPANLISIB
     Indication: COLORECTAL CANCER
     Dosage: 60, TOTAL DOSES - 12
     Dates: start: 20200106, end: 20200330

REACTIONS (1)
  - Pneumocystis jirovecii pneumonia [Unknown]

NARRATIVE: CASE EVENT DATE: 20201117
